APPROVED DRUG PRODUCT: SELENIUM SULFIDE
Active Ingredient: SELENIUM SULFIDE
Strength: 2.5%
Dosage Form/Route: LOTION/SHAMPOO;TOPICAL
Application: A089996 | Product #001
Applicant: PADAGIS US LLC
Approved: Jan 10, 1991 | RLD: No | RS: Yes | Type: RX